FAERS Safety Report 7485302-7 (Version None)
Quarter: 2011Q2

REPORT INFORMATION
  Report Type: 
  Country: None (occurrence: None)
  Receive Date: 20110517
  Receipt Date: 20101216
  Transmission Date: 20111010
  Serious: Yes (Hospitalization)
  Sender: FDA-Public Use
  Company Number: US-BAYER-201013969NA

PATIENT
  Age: 45 Year
  Sex: Female
  Weight: 52 kg

DRUGS (22)
  1. YASMIN [Suspect]
     Indication: MUSCULOSKELETAL DISORDER
     Dosage: UNK
     Route: 048
     Dates: start: 20050101, end: 20070101
  2. BETA BUTEROL [Concomitant]
     Dates: start: 20051201
  3. METRONIDAZOLE [Concomitant]
     Dosage: 250 MG, UNK
     Route: 048
     Dates: start: 20071129
  4. YAZ [Suspect]
     Indication: PRODUCT USED FOR UNKNOWN INDICATION
     Route: 048
  5. ALBUTEROL INHALER [Concomitant]
     Dates: start: 20020101
  6. NSAID'S [Concomitant]
     Dosage: UNK
     Dates: start: 20020101
  7. LORTAB [Concomitant]
     Indication: MUSCULOSKELETAL DISORDER
     Dates: start: 20060101, end: 20100101
  8. HYDROCODONE BITARTRATE AND ACETAMINOPHEN [Concomitant]
     Dosage: UNK
     Dates: start: 20071106
  9. SINGULAIR [Concomitant]
     Dates: start: 20020101
  10. HYDROCODONE BITARTRATE AND ACETAMINOPHEN [Concomitant]
     Dosage: UNK
     Dates: start: 20071023
  11. IMITREX [Concomitant]
     Dates: start: 20051201
  12. VALIUM [Concomitant]
     Indication: ANXIETY
     Dosage: 10 MG, UNK
     Dates: start: 20070101, end: 20100615
  13. HYDROCODONE BITARTRATE AND ACETAMINOPHEN [Concomitant]
     Dosage: UNK
     Route: 048
     Dates: start: 20071009
  14. HYDROCODONE BITARTRATE AND ACETAMINOPHEN [Concomitant]
     Dosage: UNK
     Dates: start: 20071204
  15. CIPROFLOXACIN [Concomitant]
     Dosage: 500 MG, UNK
     Route: 048
     Dates: start: 20071129
  16. CLARITIN [Concomitant]
     Indication: MULTIPLE ALLERGIES
     Dates: start: 20000101, end: 20100615
  17. LEVAQUIN [Concomitant]
     Dosage: 500 MG, UNK
     Route: 048
     Dates: start: 20071128
  18. CEPHALEXIN [Concomitant]
     Dosage: 500 MG, UNK
     Route: 048
     Dates: start: 20071020
  19. LIPITOR [Concomitant]
     Indication: BLOOD CHOLESTEROL INCREASED
     Dosage: UNK
     Dates: start: 20080101
  20. NSAID'S [Concomitant]
     Dates: start: 20000101
  21. VICODIN [Concomitant]
     Dates: start: 20060101, end: 20100615
  22. HYDROCODONE BITARTRATE AND ACETAMINOPHEN [Concomitant]
     Dosage: UNK
     Dates: start: 20071119

REACTIONS (1)
  - PULMONARY EMBOLISM [None]
